FAERS Safety Report 10233222 (Version 1)
Quarter: 2014Q2

REPORT INFORMATION
  Report Type: Spontaneous
  Country: US (occurrence: US)
  Receive Date: 20140612
  Receipt Date: 20140612
  Transmission Date: 20141212
  Serious: No
  Sender: FDA-Public Use
  Company Number: US-MALLINCKRODT-T201402339

PATIENT
  Age: 45 Year
  Sex: Female
  Weight: 78.91 kg

DRUGS (3)
  1. XARTEMIS XR [Suspect]
     Indication: PAIN
     Dosage: 7.5/325 MG, 2 TABS QD
     Route: 048
     Dates: start: 201405
  2. OXYCODONE [Concomitant]
     Indication: PAIN
     Dosage: UNK, PRN
  3. DILAUDID [Concomitant]
     Indication: PAIN
     Dosage: UNK, PRN

REACTIONS (2)
  - Migraine [Not Recovered/Not Resolved]
  - Abdominal pain upper [Not Recovered/Not Resolved]
